FAERS Safety Report 20586479 (Version 2)
Quarter: 2022Q1

REPORT INFORMATION
  Report Type: Spontaneous
  Country: JP (occurrence: JP)
  Receive Date: 20220313
  Receipt Date: 20220320
  Transmission Date: 20220423
  Serious: Yes (Other)
  Sender: FDA-Public Use
  Company Number: JP-KYOWAKIRIN-2022AKK003165

PATIENT
  Age: 62 Year
  Sex: Male

DRUGS (11)
  1. PEGFILGRASTIM [Suspect]
     Active Substance: PEGFILGRASTIM
     Indication: Neutropenia
     Dosage: 3.6 MG (CYCLE 3)
     Route: 058
     Dates: start: 20220211, end: 20220211
  2. AVASTIN [Concomitant]
     Active Substance: BEVACIZUMAB
     Indication: Hepatic cancer
     Dosage: 1100 MG (CYCLE 3)
     Route: 065
     Dates: start: 20220210, end: 20220210
  3. AVASTIN [Concomitant]
     Active Substance: BEVACIZUMAB
     Dosage: 1100 MG (CYCLE 1
     Route: 065
     Dates: start: 20211202, end: 20211202
  4. AVASTIN [Concomitant]
     Active Substance: BEVACIZUMAB
     Dosage: 1100 MG(CYCLE 2)
     Route: 065
     Dates: start: 20220120, end: 20220120
  5. TECENTRIQ [Concomitant]
     Active Substance: ATEZOLIZUMAB
     Indication: Hepatic cancer
     Dosage: 1200 MG (CYCLE 3)
     Route: 065
     Dates: start: 20220210, end: 20220210
  6. TECENTRIQ [Concomitant]
     Active Substance: ATEZOLIZUMAB
     Dosage: 1200 MG(CYCLE 1)
     Route: 065
     Dates: start: 20211202, end: 20211202
  7. TECENTRIQ [Concomitant]
     Active Substance: ATEZOLIZUMAB
     Dosage: 1200 MG(CYCLE 2)
     Route: 065
     Dates: start: 20220120, end: 20220120
  8. LENOGRASTIM [Concomitant]
     Active Substance: LENOGRASTIM
     Indication: Neutropenia
     Dosage: 100 UG
     Route: 058
     Dates: start: 20220303, end: 20220304
  9. LENOGRASTIM [Concomitant]
     Active Substance: LENOGRASTIM
     Dosage: 100 UG
     Route: 058
     Dates: start: 20220113, end: 20220115
  10. LENOGRASTIM [Concomitant]
     Active Substance: LENOGRASTIM
     Dosage: 100 UG
     Route: 058
     Dates: start: 20220201, end: 20220202
  11. LENOGRASTIM [Concomitant]
     Active Substance: LENOGRASTIM
     Dosage: 100 UG
     Route: 058
     Dates: start: 20220308, end: 20220309

REACTIONS (4)
  - Neutropenia [Unknown]
  - Colony stimulating factor therapy [Unknown]
  - Therapeutic procedure [Unknown]
  - Off label use [Unknown]

NARRATIVE: CASE EVENT DATE: 20220303
